FAERS Safety Report 9841757 (Version 2)
Quarter: 2014Q3

REPORT INFORMATION
  Report Type: Spontaneous
  Country: US (occurrence: US)
  Receive Date: 20140124
  Receipt Date: 20140728
  Transmission Date: 20150326
  Serious: Yes (Hospitalization)
  Sender: FDA-Public Use
  Company Number: US-009507513-1401USA010078

PATIENT
  Sex: Female

DRUGS (1)
  1. NUVARING [Suspect]
     Active Substance: ETHINYL ESTRADIOL\ETONOGESTREL
     Indication: CONTRACEPTION
     Dosage: UNK
     Route: 067
     Dates: end: 201002

REACTIONS (11)
  - Vena cava filter insertion [Unknown]
  - Deep vein thrombosis [Unknown]
  - Thrombolysis [Recovering/Resolving]
  - Anxiety [Unknown]
  - Thrombophlebitis [Unknown]
  - Blood thyroid stimulating hormone increased [Unknown]
  - Antiphospholipid antibodies [Unknown]
  - Insomnia [Unknown]
  - Back pain [Unknown]
  - Anaemia [Unknown]
  - Factor V deficiency [Unknown]

NARRATIVE: CASE EVENT DATE: 20100101
